FAERS Safety Report 10901768 (Version 1)
Quarter: 2015Q1

REPORT INFORMATION
  Report Type: Spontaneous
  Country: US (occurrence: None)
  Receive Date: 20150303
  Receipt Date: 20150303
  Transmission Date: 20150721
  Serious: Yes (Other)
  Sender: FDA-Public Use
  Company Number: None

PATIENT
  Age: 53 Year
  Sex: Male
  Weight: 85.28 kg

DRUGS (16)
  1. FENTANYL. [Concomitant]
     Active Substance: FENTANYL
  2. VITAMIN E [Concomitant]
     Active Substance: .ALPHA.-TOCOPHEROL
  3. VIT.B 12 [Concomitant]
  4. FENTANYL TRANSDERMAL [Suspect]
     Active Substance: FENTANYL
     Indication: ARACHNOIDITIS
  5. HYDROCODONE [Concomitant]
     Active Substance: HYDROCODONE
  6. MULTI VITAMINS [Concomitant]
  7. VT. POTASSIUM [Concomitant]
  8. FISH OIL [Concomitant]
     Active Substance: FISH OIL
  9. IBUPROFEINE [Concomitant]
  10. ASPIRINE [Concomitant]
     Active Substance: ASPIRIN
  11. SINUS MEDICATION OTC. [Concomitant]
  12. FENTANYL TRANSDERMAL [Suspect]
     Active Substance: FENTANYL
     Indication: INJURY
  13. FENTANYL TRANSDERMAL [Suspect]
     Active Substance: FENTANYL
     Indication: URINARY TRACT DISORDER
  14. ELECTRCI WHEEL CHAIR [Concomitant]
  15. CRUTCHES [Concomitant]
  16. VIT. E [Concomitant]

REACTIONS (6)
  - Device breakage [None]
  - Pain [None]
  - Insomnia [None]
  - Drug effect decreased [None]
  - Product substitution issue [None]
  - Product quality issue [None]

NARRATIVE: CASE EVENT DATE: 20150220
